FAERS Safety Report 9225500 (Version 2)
Quarter: 2013Q2

REPORT INFORMATION
  Report Type: Spontaneous
  Country: FR (occurrence: FR)
  Receive Date: 20130411
  Receipt Date: 20130417
  Transmission Date: 20140414
  Serious: Yes (Hospitalization)
  Sender: FDA-Public Use
  Company Number: FR-ROCHE-1211716

PATIENT
  Sex: Female

DRUGS (9)
  1. PEGASYS [Suspect]
     Indication: HEPATITIS C
     Route: 065
     Dates: start: 20130114
  2. COPEGUS [Suspect]
     Indication: HEPATITIS C
     Route: 048
     Dates: start: 20130114
  3. COPEGUS [Suspect]
     Dosage: DOSE REDUCED TO 2 TABLETS DAILY
     Route: 048
  4. INCIVO [Suspect]
     Indication: HEPATITIS C
     Route: 065
     Dates: start: 20130114, end: 20130407
  5. COTAREG [Suspect]
     Indication: HYPERTENSION
     Route: 048
     Dates: end: 20130308
  6. LEVOTHYROX [Concomitant]
     Indication: THYROID DISORDER
     Route: 065
  7. LEVOTHYROX [Concomitant]
     Route: 065
  8. HYPERIUM [Concomitant]
     Indication: HYPERTENSION
     Route: 048
  9. DAFALGAN [Concomitant]

REACTIONS (4)
  - Renal failure [Recovered/Resolved]
  - Anaemia [Recovered/Resolved]
  - Blood thyroid stimulating hormone increased [Not Recovered/Not Resolved]
  - Urinary tract infection bacterial [Unknown]
